FAERS Safety Report 9869954 (Version 1)
Quarter: 2014Q1

REPORT INFORMATION
  Report Type: Spontaneous
  Country: US (occurrence: None)
  Receive Date: 20140203
  Receipt Date: 20140203
  Transmission Date: 20141002
  Serious: No
  Sender: FDA-Public Use
  Company Number: None

PATIENT
  Sex: 0

DRUGS (2)
  1. LEVOTHYROXINE SODIUM [Suspect]
  2. SYNTHROID [Suspect]

REACTIONS (6)
  - Vitamin D decreased [None]
  - Hypothyroidism [None]
  - Lactose intolerance [None]
  - Condition aggravated [None]
  - Reaction to drug excipients [None]
  - Medication error [None]
